FAERS Safety Report 8094114-5 (Version None)
Quarter: 2012Q1

REPORT INFORMATION
  Report Type: 
  Country: None (occurrence: None)
  Receive Date: 20120131
  Receipt Date: 20120123
  Transmission Date: 20120608
  Serious: Yes (Hospitalization)
  Sender: FDA-Public Use
  Company Number: BR-US-EMD SERONO, INC.-7108701

PATIENT
  Sex: Female

DRUGS (3)
  1. REBIF [Suspect]
     Indication: PRODUCT USED FOR UNKNOWN INDICATION
     Dates: start: 20110428
  2. OMEPRAZOLE [Concomitant]
     Indication: GASTRIC DISORDER
  3. ALENTHUS [Concomitant]
     Indication: DEPRESSION

REACTIONS (5)
  - DYSPHAGIA [None]
  - MUSCLE SPASTICITY [None]
  - DEPRESSED LEVEL OF CONSCIOUSNESS [None]
  - PARAESTHESIA [None]
  - CLONUS [None]
